FAERS Safety Report 25622773 (Version 1)
Quarter: 2025Q3

REPORT INFORMATION
  Report Type: Spontaneous
  Country: US (occurrence: None)
  Receive Date: 20250729
  Receipt Date: 20250729
  Transmission Date: 20251021
  Serious: Yes (Hospitalization)
  Sender: FDA-CTU
  Company Number: None

PATIENT
  Age: 87 Year
  Sex: Male
  Weight: 81.6 kg

DRUGS (1)
  1. LUSPATERCEPT [Suspect]
     Active Substance: LUSPATERCEPT

REACTIONS (8)
  - Mental status changes [None]
  - Nausea [None]
  - Vomiting [None]
  - Pneumonia [None]
  - Asthenia [None]
  - Dizziness [None]
  - Gastrointestinal wall thickening [None]
  - Intestinal ischaemia [None]

NARRATIVE: CASE EVENT DATE: 20250728
